FAERS Safety Report 22163052 (Version 1)
Quarter: 2023Q2

REPORT INFORMATION
  Report Type: Spontaneous
  Country: IT (occurrence: IT)
  Receive Date: 20230401
  Receipt Date: 20230401
  Transmission Date: 20230722
  Serious: Yes (Hospitalization, Other)
  Sender: FDA-Public Use
  Company Number: IT-CELLTRION INC.-2022IT022324

PATIENT

DRUGS (3)
  1. INFLIXIMAB [Suspect]
     Active Substance: INFLIXIMAB
     Indication: Colitis ulcerative
     Dosage: UNK/UNK, INFUSION
     Route: 065
     Dates: start: 2021
  2. ADALIMUMAB [Suspect]
     Active Substance: ADALIMUMAB
     Indication: Colitis ulcerative
     Dosage: UNK
     Route: 058
  3. ADALIMUMAB [Suspect]
     Active Substance: ADALIMUMAB
     Dosage: UNK

REACTIONS (7)
  - Colitis ulcerative [Recovered/Resolved]
  - Colitis ulcerative [Recovered/Resolved]
  - COVID-19 [Recovered/Resolved]
  - Drug ineffective [Unknown]
  - Infusion related reaction [Unknown]
  - Therapeutic product effect decreased [Unknown]
  - Loss of therapeutic response [Unknown]
